FAERS Safety Report 10684653 (Version 1)
Quarter: 2014Q4

REPORT INFORMATION
  Report Type: Spontaneous
  Country: GB (occurrence: None)
  Receive Date: 20141229
  Receipt Date: 20141229
  Transmission Date: 20150529
  Serious: Yes (Other)
  Sender: FDA-Public Use
  Company Number: 2681207

PATIENT
  Age: 11 Year
  Sex: Male
  Weight: 54.1 kg

DRUGS (3)
  1. (IRINOTECAN HYDROCHLORIDE) [Suspect]
     Active Substance: IRINOTECAN HYDROCHLORIDE
     Indication: CYTOREDUCTIVE SURGERY
     Route: 042
     Dates: start: 20141128, end: 20141128
  2. (DESMOPRESSIN) [Concomitant]
  3. (POTASSIUM) [Concomitant]

REACTIONS (5)
  - Hyperhidrosis [None]
  - Malaise [None]
  - Urinary incontinence [None]
  - Cholinergic syndrome [None]
  - Dizziness [None]

NARRATIVE: CASE EVENT DATE: 20141128
